FAERS Safety Report 20200731 (Version 1)
Quarter: 2021Q4

REPORT INFORMATION
  Report Type: Spontaneous
  Country: US (occurrence: None)
  Receive Date: 20211217
  Receipt Date: 20211217
  Transmission Date: 20220303
  Serious: No
  Sender: FDA-Public Use
  Company Number: None

PATIENT

DRUGS (2)
  1. DEXMEDETOMIDINE [Suspect]
     Active Substance: DEXMEDETOMIDINE
     Route: 042
  2. VECURONIUM BROMIDE [Suspect]
     Active Substance: VECURONIUM BROMIDE
     Route: 042

REACTIONS (6)
  - Acidosis [None]
  - Tachycardia [None]
  - Asthenia [None]
  - General physical health deterioration [None]
  - Unresponsive to stimuli [None]
  - Wrong product administered [None]
